FAERS Safety Report 8597663-6 (Version None)
Quarter: 2012Q3

REPORT INFORMATION
  Report Type: 
  Country: None (occurrence: None)
  Receive Date: 20120803
  Receipt Date: 20120725
  Transmission Date: 20120928
  Serious: Yes (Other)
  Sender: FDA-Public Use
  Company Number: DKLU1083458

PATIENT
  Age: 22 Month
  Sex: Female

DRUGS (3)
  1. SABRIL [Suspect]
     Indication: INFANTILE SPASMS
     Dosage: 250 MG MILLIGRAM(S), 2 IN 1 D, ORAL
     Route: 048
     Dates: start: 20110817
  2. PREDNISOLONE [Concomitant]
  3. BANZEL (RUFINAMIDE) [Concomitant]

REACTIONS (1)
  - OPTIC ATROPHY [None]
